FAERS Safety Report 8188192-2 (Version None)
Quarter: 2012Q1

REPORT INFORMATION
  Report Type: 
  Country: None (occurrence: None)
  Receive Date: 20120306
  Receipt Date: 20120305
  Transmission Date: 20120608
  Serious: Yes (Death, Hospitalization)
  Sender: FDA-Public Use
  Company Number: JP-B.I. PHARMACEUTICALS,INC./RIDGEFIELD-2012-BP-00694NB

PATIENT
  Sex: Female
  Weight: 36.4 kg

DRUGS (11)
  1. PRADAXA [Suspect]
     Indication: ATRIAL FIBRILLATION
     Dosage: 220 MG
     Route: 048
     Dates: start: 20111124, end: 20111221
  2. LASIX [Concomitant]
     Indication: CARDIAC FAILURE CHRONIC
     Dosage: 40 MG
     Route: 048
  3. TREBIANOM [Concomitant]
     Dosage: 50 MG
     Route: 048
  4. DIGOXIN [Concomitant]
     Dosage: 0.125 MG
     Route: 048
  5. ALDACTONE [Concomitant]
     Indication: CARDIAC FAILURE CHRONIC
     Dosage: 25 MG
     Route: 048
  6. FAMOTIDINE [Concomitant]
     Indication: GASTRIC ULCER
     Route: 048
  7. OSPAIN [Concomitant]
     Dosage: 200 MG
     Route: 048
  8. ENALAPRIL MALEATE [Concomitant]
     Dosage: 5 MG
     Route: 048
  9. ANPLAG [Concomitant]
     Dosage: 300 MG
     Route: 048
  10. DIGOXIN [Concomitant]
     Indication: ATRIAL FIBRILLATION
     Dosage: 0.0625 MG
     Route: 048
     Dates: end: 20111222
  11. PREDNISOLONE [Concomitant]
     Indication: RHEUMATOID ARTHRITIS
     Dosage: 7.5 MG
     Route: 048

REACTIONS (11)
  - RENAL IMPAIRMENT [None]
  - BRADYCARDIA [None]
  - CARDIAC ARREST [None]
  - RESPIRATORY ACIDOSIS [None]
  - ANAEMIA [None]
  - HAEMORRHAGE [None]
  - PULMONARY ALVEOLAR HAEMORRHAGE [None]
  - ISCHAEMIC HEPATITIS [None]
  - GASTROINTESTINAL HAEMORRHAGE [None]
  - DEPRESSED LEVEL OF CONSCIOUSNESS [None]
  - PNEUMONIA [None]
